FAERS Safety Report 6689389-0 (Version None)
Quarter: 2010Q2

REPORT INFORMATION
  Report Type: 
  Country: None (occurrence: None)
  Receive Date: 20100419
  Receipt Date: 20100419
  Transmission Date: 20101027
  Serious: Yes (Disabling)
  Sender: FDA-Public Use
  Company Number: None

PATIENT
  Age: 41 Year
  Sex: Female
  Weight: 73.4827 kg

DRUGS (1)
  1. HALOPERIDOL [Suspect]
     Indication: ANXIETY
     Dosage: 15 MG 1 DOSE IV DRIP
     Route: 041
     Dates: start: 20100410, end: 20100410

REACTIONS (10)
  - ANXIETY [None]
  - BLOOD ALCOHOL INCREASED [None]
  - DEPRESSION [None]
  - DYSPNOEA [None]
  - EMOTIONAL DISORDER [None]
  - EYE ROLLING [None]
  - FATIGUE [None]
  - INSOMNIA [None]
  - PARANOIA [None]
  - RESTLESSNESS [None]
